FAERS Safety Report 9472366 (Version 1)
Quarter: 2013Q3

REPORT INFORMATION
  Report Type: Spontaneous
  Country: US (occurrence: US)
  Receive Date: 20130823
  Receipt Date: 20130823
  Transmission Date: 20140515
  Serious: Yes (Death)
  Sender: FDA-Public Use
  Company Number: US-BAYER-2013-101861

PATIENT
  Sex: 0
  Weight: 3.06 kg

DRUGS (4)
  1. MIRENA [Suspect]
     Route: 064
  2. FIORICET [Concomitant]
     Route: 064
  3. PHENERGAN [Concomitant]
     Route: 064
  4. PRENATAL VITAMINS [Concomitant]
     Route: 064

REACTIONS (1)
  - Sudden death [Fatal]
